FAERS Safety Report 16673735 (Version 2)
Quarter: 2019Q3

REPORT INFORMATION
  Report Type: Spontaneous
  Country: CN (occurrence: CN)
  Receive Date: 20190806
  Receipt Date: 20190814
  Transmission Date: 20191004
  Serious: Yes (Life-Threatening, Other)
  Sender: FDA-Public Use
  Company Number: CN-JNJFOC-20190733719

PATIENT
  Age: 28 Year
  Sex: Female

DRUGS (12)
  1. MESNA. [Suspect]
     Active Substance: MESNA
     Indication: METASTASES TO CENTRAL NERVOUS SYSTEM
  2. CAELYX [Suspect]
     Active Substance: DOXORUBICIN HYDROCHLORIDE
     Indication: METASTASES TO CENTRAL NERVOUS SYSTEM
     Dosage: EVERY 3 WEEKS; CYCLICAL
     Route: 042
  3. CAELYX [Suspect]
     Active Substance: DOXORUBICIN HYDROCHLORIDE
     Indication: METASTASES TO LUNG
  4. IFOSFAMIDE. [Suspect]
     Active Substance: IFOSFAMIDE
     Indication: METASTASES TO LUNG
  5. MESNA. [Suspect]
     Active Substance: MESNA
     Indication: AMELOBLASTOMA
     Dosage: EVERY 3 WEEKS; CYCLICAL
     Route: 042
  6. CAELYX [Suspect]
     Active Substance: DOXORUBICIN HYDROCHLORIDE
     Indication: AMELOBLASTOMA
  7. DACARBAZINE. [Suspect]
     Active Substance: DACARBAZINE
     Indication: AMELOBLASTOMA
  8. MESNA. [Suspect]
     Active Substance: MESNA
     Indication: METASTASES TO LUNG
  9. IFOSFAMIDE. [Suspect]
     Active Substance: IFOSFAMIDE
     Indication: AMELOBLASTOMA
     Dosage: EVERY 3 WEEKS; CYCLICAL
     Route: 042
  10. IFOSFAMIDE. [Suspect]
     Active Substance: IFOSFAMIDE
     Indication: METASTASES TO CENTRAL NERVOUS SYSTEM
  11. DACARBAZINE. [Suspect]
     Active Substance: DACARBAZINE
     Indication: METASTASES TO LUNG
  12. DACARBAZINE. [Suspect]
     Active Substance: DACARBAZINE
     Indication: METASTASES TO CENTRAL NERVOUS SYSTEM
     Dosage: EVERY 3 WEEKS; CYCLICAL
     Route: 042

REACTIONS (7)
  - Anaemia [Unknown]
  - Off label use [Unknown]
  - Nausea [Unknown]
  - Neutropenia [Unknown]
  - Leukopenia [Unknown]
  - Erectile dysfunction [Unknown]
  - Product use in unapproved indication [Unknown]
